FAERS Safety Report 12688099 (Version 1)
Quarter: 2016Q3

REPORT INFORMATION
  Report Type: Spontaneous
  Country: US (occurrence: None)
  Receive Date: 20160825
  Receipt Date: 20160825
  Transmission Date: 20161109
  Serious: No
  Sender: FDA-Public Use
  Company Number: None

PATIENT
  Age: 69 Year
  Sex: Male
  Weight: 85.73 kg

DRUGS (44)
  1. BUPROPION XL/WELLBUTRIN [Concomitant]
  2. NIACINAMIDE [Concomitant]
     Active Substance: NIACINAMIDE
  3. VITAMIN B12 [Concomitant]
     Active Substance: CYANOCOBALAMIN
  4. PAPAYA ENZYME [Concomitant]
  5. VITAMIN C WITH ROSE HIPS [Concomitant]
  6. RIBOFLAVIN (B-2) [Concomitant]
  7. CHOLINE BITARTRATE [Concomitant]
     Active Substance: CHOLINE BITARTRATE
  8. POTASSIUM CITRATE. [Concomitant]
     Active Substance: POTASSIUM CITRATE
  9. VITAMIN D3 [Concomitant]
     Active Substance: CHOLECALCIFEROL
  10. GLUCOSAMINE SULFATE (FROM SHELLFISH) [Concomitant]
  11. PAPAYA (FRUIT) [Concomitant]
  12. BROMELAIN [Concomitant]
     Active Substance: BROMELAINS
  13. METHOCARBAM (ROBAXIN) [Concomitant]
  14. FOLIC ACID. [Concomitant]
     Active Substance: FOLIC ACID
  15. PABA (PARA-AMINOBENZOIC ACID) [Concomitant]
  16. COQ10 [Concomitant]
     Active Substance: UBIDECARENONE
  17. VITAMIN E [Concomitant]
     Active Substance: .ALPHA.-TOCOPHEROL
  18. MANGANESE [Concomitant]
     Active Substance: MANGANESE\MANGANESE CHLORIDE
  19. BACK AND BODY CAPLETS [Concomitant]
  20. INOSITOL [Concomitant]
     Active Substance: INOSITOL
  21. ZINC [Concomitant]
     Active Substance: ZINC\ZINC CHLORIDE
  22. VITAMIN C [Concomitant]
     Active Substance: ASCORBIC ACID
  23. CRESTOR [Concomitant]
     Active Substance: ROSUVASTATIN CALCIUM
  24. VITAMIN B-6 [Concomitant]
     Active Substance: PYRIDOXINE
  25. PANTOTHENIC ACID [Concomitant]
     Active Substance: PANTOTHENIC ACID
  26. BETA CAROTINE (VITAMIN A) [Concomitant]
  27. MAGNESIUM [Concomitant]
     Active Substance: MAGNESIUM
  28. JOINT CARE (COMPLEX) [Concomitant]
  29. CAFFEINE. [Concomitant]
     Active Substance: CAFFEINE
  30. NATURE VITAMIN E [Concomitant]
  31. OPANA ER [Suspect]
     Active Substance: OXYMORPHONE HYDROCHLORIDE
     Indication: BACK DISORDER
     Route: 048
  32. MSM (METHYLSULFONYLMETHANE) [Concomitant]
  33. MELATONIN [Concomitant]
     Active Substance: MELATONIN
  34. PAPAIN [Concomitant]
     Active Substance: PAPAIN
  35. ALPHA AMYLASE [Concomitant]
  36. BALANCE B-100 COMPLEX [Concomitant]
  37. THIAMIN (B-1) [Concomitant]
  38. BIOTIN [Concomitant]
     Active Substance: BIOTIN
  39. TUMERIC [Concomitant]
     Active Substance: TURMERIC
  40. PHOSPHATIDYL-CHOLINE [Concomitant]
  41. AVACADO OIL (OMEGA 3,6,9) [Concomitant]
  42. GARLIC OIL [Concomitant]
     Active Substance: GARLIC OIL
  43. NAPROXEN SODIUM (NSAID) (ALEVE) [Concomitant]
  44. ASPIRIN. [Concomitant]
     Active Substance: ASPIRIN

REACTIONS (3)
  - Drug screen negative [None]
  - Drug ineffective [None]
  - Product quality issue [None]

NARRATIVE: CASE EVENT DATE: 20160816
